FAERS Safety Report 9395323 (Version 1)
Quarter: 2013Q3

REPORT INFORMATION
  Report Type: Spontaneous
  Country: US (occurrence: US)
  Receive Date: 20130711
  Receipt Date: 20130711
  Transmission Date: 20140515
  Serious: No
  Sender: FDA-Public Use
  Company Number: US-ASTELLAS-2013US005110

PATIENT
  Sex: Male

DRUGS (3)
  1. MYRBETRIQ [Suspect]
     Indication: POLLAKIURIA
     Dosage: UNK
     Route: 065
  2. MYRBETRIQ [Suspect]
     Indication: MICTURITION URGENCY
  3. MYRBETRIQ [Suspect]
     Indication: URGE INCONTINENCE

REACTIONS (1)
  - Dizziness [Unknown]
